FAERS Safety Report 14091413 (Version 4)
Quarter: 2018Q1

REPORT INFORMATION
  Report Type: Spontaneous
  Country: US (occurrence: US)
  Receive Date: 20171016
  Receipt Date: 20180129
  Transmission Date: 20180508
  Serious: Yes (Hospitalization, Other)
  Sender: FDA-Public Use
  Company Number: US-ASTRAZENECA-2017SF04456

PATIENT
  Age: 19618 Day
  Sex: Female
  Weight: 102.1 kg

DRUGS (39)
  1. POLYETHYLENE GLYCOL [Concomitant]
     Active Substance: POLYETHYLENE GLYCOLS
     Dosage: TAKE 17 GRAM BY MOUTH DAILY
     Route: 048
  2. LIDODERM [Concomitant]
     Active Substance: LIDOCAINE
     Dosage: APPLY 1 PATCH TO AFFECTED 10 PATCH AREA DAILY APPLY ONLY ONCE FOR UP TO 12 HOURS WITHIN A 24 HOUR...
  3. DESYREL [Concomitant]
     Active Substance: TRAZODONE HYDROCHLORIDE
     Dosage: TAKE 1.5 TABS (150 MG) BY MOUTH DAILY AT BEDTIME
     Route: 048
     Dates: start: 20151010
  4. DULOXETINE. [Concomitant]
     Active Substance: DULOXETINE
  5. FARXIGA [Suspect]
     Active Substance: DAPAGLIFLOZIN PROPANEDIOL
     Indication: DIABETES MELLITUS
     Dosage: 10.0MG UNKNOWN
     Route: 048
     Dates: start: 201401, end: 201602
  6. FARXIGA [Suspect]
     Active Substance: DAPAGLIFLOZIN PROPANEDIOL
     Indication: DIABETES MELLITUS
     Dosage: 10.0MG UNKNOWN
     Route: 048
     Dates: start: 20170126
  7. PERCOCET [Concomitant]
     Active Substance: ACETAMINOPHEN\OXYCODONE HYDROCHLORIDE
     Indication: PAIN
     Dosage: 5-325 MG TAKE 1-2 TABLET BY MOUTH EVERY 4 HOURS AS NEEDED
  8. PROMETHAZINE [Concomitant]
     Active Substance: PROMETHAZINE\PROMETHAZINE HYDROCHLORIDE
     Indication: VOMITING
     Dosage: TAKE 1 TABLET (25 MG) BY 20 TABLET MOUTH EVERY 6 HOURS AS NEEDED
     Route: 048
     Dates: start: 20151010
  9. JANUVIA [Concomitant]
     Active Substance: SITAGLIPTIN PHOSPHATE
     Route: 048
     Dates: start: 20151010
  10. CARAFATE [Concomitant]
     Active Substance: SUCRALFATE
     Dosage: TAKE 1 TAB (1 GRAM) BY MOUTH 4 TIMES DAILY BEFORE MEALS AND AT BEDTIME
     Route: 048
     Dates: start: 20151010
  11. FARXIGA [Suspect]
     Active Substance: DAPAGLIFLOZIN PROPANEDIOL
     Indication: DIABETES MELLITUS
     Dosage: UNKNOWN
     Route: 048
     Dates: start: 201510
  12. PRILOSEC [Concomitant]
     Active Substance: OMEPRAZOLE MAGNESIUM
     Dates: start: 20150801, end: 201710
  13. NEURONTIN [Concomitant]
     Active Substance: GABAPENTIN
     Dosage: TAKE 1 TAB (600 MG) BY MOUTH 3 TIMES DAILY.
     Route: 048
     Dates: start: 20151010
  14. PLAVIX [Concomitant]
     Active Substance: CLOPIDOGREL BISULFATE
     Route: 048
     Dates: start: 20150828
  15. NAPROXEN. [Concomitant]
     Active Substance: NAPROXEN
  16. VALIUM [Concomitant]
     Active Substance: DIAZEPAM
     Route: 048
     Dates: start: 20150327
  17. ADVAIR DISKUS [Concomitant]
     Active Substance: FLUTICASONE PROPIONATE\SALMETEROL XINAFOATE
     Route: 065
     Dates: start: 20150303
  18. ZOCOR [Concomitant]
     Active Substance: SIMVASTATIN
     Route: 065
     Dates: start: 20150303
  19. NOLOVLOG [Concomitant]
     Dates: start: 20150801, end: 201710
  20. ZYMAXID [Concomitant]
     Active Substance: GATIFLOXACIN
  21. ZOFRAN [Concomitant]
     Active Substance: ONDANSETRON HYDROCHLORIDE
     Dosage: TAKE 1 TABLET BY ORAL ROUTE EVERY 12 HOURS
     Route: 048
  22. ALBUTEROL SULFATE. [Concomitant]
     Active Substance: ALBUTEROL SULFATE
     Route: 065
     Dates: start: 20150327
  23. PREVACID [Concomitant]
     Active Substance: LANSOPRAZOLE
     Dates: start: 20150801, end: 201710
  24. LIBRAX [Concomitant]
     Active Substance: CHLORDIAZEPOXIDE HYDROCHLORIDE\CLIDINIUM BROMIDE
     Dosage: 5-2.5 MG CAPSULE (TAKE 1 CAP BY MOUTH 3 TIMES A DAY BEFORE MEALS)
     Dates: start: 20151010
  25. PNEUMOCOCCAL VACCINE POLYVALENT NOS [Concomitant]
     Active Substance: PNEUMOCOCCAL VACCINE POLYVALENT
     Route: 030
     Dates: start: 20121013
  26. FARXIGA [Suspect]
     Active Substance: DAPAGLIFLOZIN PROPANEDIOL
     Indication: DIABETES MELLITUS
     Dosage: 10.0MG UNKNOWN
     Route: 048
     Dates: start: 20150801, end: 201710
  27. NEXIUM [Concomitant]
     Active Substance: ESOMEPRAZOLE MAGNESIUM
     Dates: start: 20150801, end: 201710
  28. HUMALOG [Concomitant]
     Active Substance: INSULIN LISPRO
     Dates: start: 20150801, end: 201710
  29. REQUIP [Concomitant]
     Active Substance: ROPINIROLE HYDROCHLORIDE
     Route: 048
     Dates: start: 20151010
  30. REGLAN [Concomitant]
     Active Substance: METOCLOPRAMIDE HYDROCHLORIDE
     Dosage: TAKE 0.5 TABLET (5 MG) BY MOUTH 4 TIMES DAILY BEFORE MEALS AND AT BEDTIME FOR 7 DAYS
     Dates: end: 20151022
  31. TRAMADOL. [Concomitant]
     Active Substance: TRAMADOL
     Indication: PAIN
     Dosage: TAKE 2 TABLET (100 MG) BY MOUTH EVERY 6 HOURS AS NEEDED FOR PAIN
  32. GLUCOPHAGE [Concomitant]
     Active Substance: METFORMIN HYDROCHLORIDE
     Route: 048
     Dates: start: 20151010
  33. LANTUS [Concomitant]
     Active Substance: INSULIN GLARGINE
     Route: 058
     Dates: start: 20150801, end: 201710
  34. PROMETHAZINE [Concomitant]
     Active Substance: PROMETHAZINE\PROMETHAZINE HYDROCHLORIDE
     Indication: NAUSEA
     Dosage: TAKE 1 TABLET (25 MG) BY 20 TABLET MOUTH EVERY 6 HOURS AS NEEDED
     Route: 048
     Dates: start: 20151010
  35. GLUCOTROL [Concomitant]
     Active Substance: GLIPIZIDE
     Route: 048
     Dates: start: 20151010
  36. PROAIR HFA [Concomitant]
     Active Substance: ALBUTEROL SULFATE
     Indication: DYSPNOEA
     Dosage: TAKE 2 PUFFS BY INHALATION EVERY 6 HOURS AS NEEDED
     Route: 048
     Dates: start: 20151010
  37. SIMETHICONE (DIMETHICONE) [Concomitant]
     Active Substance: DIMETHICONE
     Dosage: TAKE 125 MG BY MOUTH EVERY 6 HOURS AS NEEDED
     Route: 048
  38. MOTRIN [Concomitant]
     Active Substance: IBUPROFEN
     Route: 065
     Dates: start: 20150303
  39. JANUMET [Concomitant]
     Active Substance: METFORMIN HYDROCHLORIDE\SITAGLIPTIN PHOSPHATE
     Route: 065
     Dates: start: 20150303

REACTIONS (5)
  - Diabetic neuropathy [Unknown]
  - Hypertension [Unknown]
  - Pancreatitis chronic [Unknown]
  - Pancreatitis [Unknown]
  - Diabetic ketoacidosis [Recovered/Resolved]

NARRATIVE: CASE EVENT DATE: 20150310
